FAERS Safety Report 4315578-6 (Version None)
Quarter: 2004Q1

REPORT INFORMATION
  Report Type: 
  Country: None (occurrence: None)
  Receive Date: 20040311
  Receipt Date: 20040204
  Transmission Date: 20041129
  Serious: Yes (Death, Hospitalization, Other)
  Sender: FDA-Public Use
  Company Number: US-BRISTOL-MYERS SQUIBB COMPANY-12495784

PATIENT
  Age: 41 Year
  Sex: Female
  Weight: 36 kg

DRUGS (5)
  1. CISPLATIN [Suspect]
     Indication: CERVIX CARCINOMA
     Route: 042
     Dates: start: 20040114, end: 20040114
  2. ATIVAN [Concomitant]
     Indication: PREMEDICATION
     Route: 042
     Dates: start: 20040114, end: 20040114
  3. ZOFRAN [Concomitant]
     Indication: PREMEDICATION
     Route: 042
     Dates: start: 20040114, end: 20040114
  4. LASIX [Concomitant]
     Indication: PREMEDICATION
     Route: 042
     Dates: start: 20040114, end: 20040114
  5. TYLENOL (CAPLET) [Concomitant]
     Indication: HEADACHE
     Route: 048
     Dates: start: 20040114, end: 20040114

REACTIONS (5)
  - BONE MARROW DEPRESSION [None]
  - CERVIX CARCINOMA [None]
  - FEBRILE NEUTROPENIA [None]
  - RENAL IMPAIRMENT [None]
  - URINARY TRACT INFECTION FUNGAL [None]
